FAERS Safety Report 5099403-4 (Version None)
Quarter: 2006Q3

REPORT INFORMATION
  Report Type: 
  Country: None (occurrence: None)
  Receive Date: 20060906
  Receipt Date: 20060720
  Transmission Date: 20061208
  Serious: Yes (Hospitalization)
  Sender: FDA-Public Use
  Company Number: ALMO2006005

PATIENT
  Age: 23 Year
  Sex: Male
  Weight: 72.5755 kg

DRUGS (13)
  1. AXERT [Suspect]
     Indication: MIGRAINE
     Dosage: 12.5 MG PO
     Route: 048
     Dates: start: 20060121, end: 20060121
  2. AXERT [Suspect]
     Indication: MIGRAINE
     Dosage: 12.5 MG PO
     Route: 048
     Dates: start: 20060124, end: 20060124
  3. AXERT [Suspect]
     Indication: MIGRAINE
     Dosage: 12.5 MG PO
     Route: 048
     Dates: start: 20060127, end: 20060127
  4. AXERT [Suspect]
     Indication: MIGRAINE
     Dosage: 12.5 MG PO
     Route: 048
     Dates: start: 20060129, end: 20060129
  5. AXERT [Suspect]
     Indication: MIGRAINE
     Dosage: 12.5 MG PO
     Route: 048
     Dates: start: 20060214, end: 20060214
  6. AXERT [Suspect]
     Indication: MIGRAINE
     Dosage: 12.5 MG PO
     Route: 048
     Dates: start: 20060303, end: 20060303
  7. AXERT [Suspect]
     Indication: MIGRAINE
     Dosage: 12.5 MG PO
     Route: 048
     Dates: start: 20060317, end: 20060317
  8. AXERT [Suspect]
     Indication: MIGRAINE
     Dosage: 12.5 MG PO
     Route: 048
     Dates: start: 20060508, end: 20060508
  9. TOPAMAX [Concomitant]
  10. TOPAMAX/PLACEBO [Concomitant]
  11. PROPECIA [Concomitant]
  12. IMITREX [Concomitant]
  13. EXCEDRIN (MIGRAINE) [Concomitant]

REACTIONS (31)
  - ABNORMAL DREAMS [None]
  - ANXIETY [None]
  - ASTHENIA [None]
  - BALANCE DISORDER [None]
  - CHEST DISCOMFORT [None]
  - CHEST PAIN [None]
  - CONFUSIONAL STATE [None]
  - DISTURBANCE IN ATTENTION [None]
  - DIZZINESS [None]
  - DRUG EFFECT DECREASED [None]
  - DYSPNOEA [None]
  - EJECTION FRACTION DECREASED [None]
  - ELECTROCARDIOGRAM REPOLARISATION ABNORMALITY [None]
  - FATIGUE [None]
  - FEELING ABNORMAL [None]
  - FEELING COLD [None]
  - HEART RATE INCREASED [None]
  - INSOMNIA [None]
  - IRRITABILITY [None]
  - MIGRAINE WITHOUT AURA [None]
  - NAUSEA [None]
  - PALPITATIONS [None]
  - PARAESTHESIA [None]
  - PHONOPHOBIA [None]
  - PHOTOPHOBIA [None]
  - SINUS ARRHYTHMIA [None]
  - SINUS BRADYCARDIA [None]
  - TRICUSPID VALVE INCOMPETENCE [None]
  - VERTIGO [None]
  - VISION BLURRED [None]
  - VOMITING [None]
